FAERS Safety Report 24687225 (Version 1)
Quarter: 2024Q4

REPORT INFORMATION
  Report Type: Spontaneous
  Country: US (occurrence: US)
  Receive Date: 20241202
  Receipt Date: 20241202
  Transmission Date: 20250114
  Serious: No
  Sender: INCYTE
  Company Number: US-002147023-NVSC2024US223106

PATIENT

DRUGS (2)
  1. JAKAFI [Suspect]
     Active Substance: RUXOLITINIB
     Indication: Alopecia areata
     Dosage: UNK, BID (TOPICAL CREAM APPLIED TO THE AFFECTED AREAS TWICE DAILY FOR 30 DAYS)
     Route: 050
  2. FEXOFENADINE [Concomitant]
     Active Substance: FEXOFENADINE HYDROCHLORIDE
     Indication: Alopecia areata
     Dosage: 30 MG, BID
     Route: 048

REACTIONS (1)
  - Off label use [Unknown]
